FAERS Safety Report 10079443 (Version 1)
Quarter: 2014Q2

REPORT INFORMATION
  Report Type: Report from Study
  Country: DE (occurrence: DE)
  Receive Date: 20140415
  Receipt Date: 20140415
  Transmission Date: 20141212
  Serious: Yes (Hospitalization)
  Sender: FDA-Public Use
  Company Number: DE-009507513-1404DEU006120

PATIENT
  Age: 39 Year
  Sex: Male

DRUGS (5)
  1. BOCEPREVIR [Suspect]
     Indication: HEPATITIS C
     Dosage: TOTOAL DAILY DOSE 2400 MG
     Route: 048
     Dates: start: 20121109
  2. PEGINTERFERON ALFA-2B [Suspect]
     Indication: HEPATITIS C
     Dosage: UNK
     Route: 058
  3. RIBAVIRIN [Suspect]
     Indication: HEPATITIS C
     Route: 048
  4. RAMIPLUS [Concomitant]
     Indication: HYPERTENSION
     Dosage: 5/25 (UNITS NOT REPORTED) ONCE A DAY
     Route: 048
  5. CITALOPRAM [Concomitant]
     Indication: DEPRESSION
     Dosage: 20 (UNITS NO REPORTED) ONCE A DAY
     Route: 048

REACTIONS (1)
  - Mononeuritis [Recovered/Resolved]
